FAERS Safety Report 6685186-0 (Version None)
Quarter: 2010Q2

REPORT INFORMATION
  Report Type: 
  Country: None (occurrence: None)
  Receive Date: 20100416
  Receipt Date: 20100409
  Transmission Date: 20101027
  Serious: Yes (Other)
  Sender: FDA-Public Use
  Company Number: BR-ROCHE-696533

PATIENT
  Weight: 1.5 kg

DRUGS (1)
  1. TAMIFLU [Suspect]
     Dosage: START AND STOP DATE; 2010
     Route: 064

REACTIONS (1)
  - PREMATURE BABY [None]
